FAERS Safety Report 4970839-2 (Version None)
Quarter: 2006Q2

REPORT INFORMATION
  Report Type: 
  Country: None (occurrence: None)
  Receive Date: 20060406
  Receipt Date: 20060320
  Transmission Date: 20061013
  Serious: Yes (Other)
  Sender: FDA-Public Use
  Company Number: US200603001324

PATIENT
  Sex: Male

DRUGS (2)
  1. GEMZAR [Suspect]
     Indication: BLADDER CANCER
     Dosage: 125 MG/M2, OTHER, INTRAVENOUS
     Route: 042
  2. ADRIAMYCIN PFS [Concomitant]

REACTIONS (1)
  - THROMBOTIC THROMBOCYTOPENIC PURPURA [None]
